FAERS Safety Report 4376098-6 (Version None)
Quarter: 2004Q2

REPORT INFORMATION
  Report Type: 
  Country: None (occurrence: None)
  Receive Date: 20040611
  Receipt Date: 20040610
  Transmission Date: 20050107
  Serious: Yes (Death)
  Sender: FDA-Public Use
  Company Number: US-GLAXOSMITHKLINE-A0514132A

PATIENT
  Sex: Male

DRUGS (8)
  1. COREG [Suspect]
     Indication: ILL-DEFINED DISORDER
     Dosage: 125MG TWICE PER DAY
     Route: 048
  2. COGENTIN [Concomitant]
  3. CLONOPIN [Concomitant]
  4. DEPAKOTE [Concomitant]
  5. TRILAFON [Concomitant]
  6. NEURONTIN [Concomitant]
  7. HYDROXYZINE [Concomitant]
  8. LEVOTHROID [Concomitant]

REACTIONS (1)
  - DEATH [None]
